FAERS Safety Report 7314475-1 (Version None)
Quarter: 2011Q1

REPORT INFORMATION
  Report Type: 
  Country: None (occurrence: None)
  Receive Date: 20110218
  Receipt Date: 20110218
  Transmission Date: 20110831
  Serious: Yes (Hospitalization)
  Sender: FDA-Public Use
  Company Number: None

PATIENT
  Age: 78 Year
  Sex: Male

DRUGS (2)
  1. VALSARTAN [Suspect]
     Dosage: 80 MG EVERY DAY PO
     Route: 048
     Dates: start: 20110107
  2. VALSARTAN [Suspect]
     Dosage: 160 MG EVERY DAY PO
     Route: 048
     Dates: start: 20101201, end: 20110107

REACTIONS (5)
  - WEIGHT INCREASED [None]
  - RENAL FAILURE CHRONIC [None]
  - STASIS DERMATITIS [None]
  - OEDEMA PERIPHERAL [None]
  - HYPERKALAEMIA [None]
